FAERS Safety Report 5490580-X (Version None)
Quarter: 2007Q4

REPORT INFORMATION
  Report Type: 
  Country: None (occurrence: None)
  Receive Date: 20071019
  Receipt Date: 20071009
  Transmission Date: 20080405
  Serious: Yes (Hospitalization)
  Sender: FDA-Public Use
  Company Number: US-JNJFOC-20071002535

PATIENT
  Sex: Female
  Weight: 111.13 kg

DRUGS (8)
  1. FENTANYL TRANSDERMAL SYSTEM [Suspect]
     Indication: PAIN
     Route: 062
  2. FENTANYL TRANSDERMAL SYSTEM [Suspect]
     Indication: PAIN
     Route: 062
  3. ARIMIDEX [Concomitant]
     Indication: BREAST CANCER
     Route: 048
  4. FUROSEMIDE [Concomitant]
     Indication: FLUID RETENTION
     Route: 048
  5. POTASSIUM CHLORIDE [Concomitant]
     Indication: DRUG THERAPY
     Route: 048
  6. DIOVAN [Concomitant]
     Route: 048
  7. METROPROLOL [Concomitant]
     Indication: BLOOD PRESSURE
     Route: 048
  8. ACTIQ [Concomitant]
     Indication: PAIN
     Route: 048

REACTIONS (6)
  - CARDIAC FAILURE CONGESTIVE [None]
  - HIATUS HERNIA [None]
  - RENAL FAILURE [None]
  - ULCER [None]
  - WEIGHT DECREASED [None]
  - WRONG TECHNIQUE IN DRUG USAGE PROCESS [None]
